FAERS Safety Report 20427993 (Version 1)
Quarter: 2022Q1

REPORT INFORMATION
  Report Type: Spontaneous
  Country: IT (occurrence: IT)
  Receive Date: 20220204
  Receipt Date: 20220204
  Transmission Date: 20220424
  Serious: No
  Sender: FDA-Public Use
  Company Number: IT-LUPIN PHARMACEUTICALS INC.-2022-01132

PATIENT
  Age: 58 Year
  Sex: Male

DRUGS (6)
  1. LACOSAMIDE [Suspect]
     Active Substance: LACOSAMIDE
     Indication: Myotonia congenita
     Dosage: 50 MILLIGRAM FOR 1 WEEK
     Route: 065
  2. LACOSAMIDE [Suspect]
     Active Substance: LACOSAMIDE
     Dosage: 100 MILLIGRAM, BID
     Route: 065
  3. MEXILETINE [Suspect]
     Active Substance: MEXILETINE
     Indication: Product used for unknown indication
     Dosage: 200 MILLIGRAM, TID
     Route: 065
  4. RANOLAZINE [Suspect]
     Active Substance: RANOLAZINE
     Indication: Myotonia congenita
     Dosage: 500 MILLIGRAM, BID
     Route: 065
  5. RANOLAZINE [Suspect]
     Active Substance: RANOLAZINE
     Dosage: 750 MILLIGRAM, BID
     Route: 065
  6. BUPRENORPHINE [Concomitant]
     Active Substance: BUPRENORPHINE
     Indication: Myotonia congenita
     Dosage: 0.5 MILLIGRAM, BID
     Route: 065

REACTIONS (3)
  - Drug ineffective for unapproved indication [Unknown]
  - Off label use [Unknown]
  - Gastrointestinal disorder [Unknown]
